FAERS Safety Report 5496518-3 (Version None)
Quarter: 2007Q4

REPORT INFORMATION
  Report Type: 
  Country: None (occurrence: None)
  Receive Date: 20071023
  Receipt Date: 20071023
  Transmission Date: 20080405
  Serious: No
  Sender: FDA-Public Use
  Company Number: None

PATIENT
  Sex: Male
  Weight: 90.7194 kg

DRUGS (1)
  1. ANDRODERM [Suspect]
     Indication: BLOOD TESTOSTERONE DECREASED
     Dosage: 5MG/ 24HR ONCE DAILY TOPICAL
     Route: 061
     Dates: start: 20071009

REACTIONS (1)
  - PHARMACEUTICAL PRODUCT COMPLAINT [None]
